FAERS Safety Report 5270127-3 (Version None)
Quarter: 2007Q1

REPORT INFORMATION
  Report Type: 
  Country: None (occurrence: None)
  Receive Date: 20070314
  Receipt Date: 20070301
  Transmission Date: 20070707
  Serious: Yes (Death)
  Sender: FDA-Public Use
  Company Number: 237545

PATIENT
  Age: 61 Year
  Sex: Female
  Weight: 48.1 kg

DRUGS (4)
  1. AVASTIN [Suspect]
     Indication: BREAST CANCER METASTATIC
     Dosage: 490, QOW, INTRAVENOUS
     Route: 042
     Dates: start: 20060908
  2. HERCEPTIN [Suspect]
     Indication: BREAST CANCER METASTATIC
     Dosage: 380 MG
     Dates: start: 20070206
  3. TAXOTERE [Concomitant]
  4. ZOMETA [Concomitant]

REACTIONS (4)
  - BRONCHOPULMONARY ASPERGILLOSIS [None]
  - CARDIO-RESPIRATORY ARREST [None]
  - HAEMOPTYSIS [None]
  - LOSS OF CONSCIOUSNESS [None]
